FAERS Safety Report 5091298-8 (Version None)
Quarter: 2006Q3

REPORT INFORMATION
  Report Type: 
  Country: None (occurrence: None)
  Receive Date: 20060727
  Receipt Date: 20060609
  Transmission Date: 20061208
  Serious: No
  Sender: FDA-Public Use
  Company Number: 2006062481

PATIENT
  Age: 61 Year
  Sex: Female
  Weight: 72.5755 kg

DRUGS (5)
  1. LYRICA [Suspect]
     Indication: NEURALGIA
     Dosage: 75 MG (75 MG,1 IN 1 D),ORAL
     Route: 048
     Dates: start: 20060403, end: 20060401
  2. RELAFEN (NABUMETOME) [Concomitant]
  3. MONTELUKAST (MONTELUKAST) [Concomitant]
  4. VITAMINS (VITAMINS) [Concomitant]
  5. ACETAMINOPHEN [Concomitant]

REACTIONS (2)
  - SKIN EXFOLIATION [None]
  - SKIN ULCER [None]
